FAERS Safety Report 23572322 (Version 2)
Quarter: 2024Q1

REPORT INFORMATION
  Report Type: Spontaneous
  Country: US (occurrence: US)
  Receive Date: 20240227
  Receipt Date: 20240229
  Transmission Date: 20240409
  Serious: Yes (Hospitalization, Other)
  Sender: FDA-Public Use
  Company Number: US-BRISTOL-MYERS SQUIBB COMPANY-2024-029858

PATIENT
  Age: 87 Year
  Sex: Female

DRUGS (1)
  1. LENALIDOMIDE [Suspect]
     Active Substance: LENALIDOMIDE
     Indication: Hypothyroidism
     Dosage: TAKE 1 CAPSULE BY MOUTH ON DAYS 1-21 FOLLOWED BY 7 DAYS OFF OF A 28 DAY CYCLE
     Route: 048
     Dates: start: 20230919

REACTIONS (2)
  - Cerebrovascular accident [Not Recovered/Not Resolved]
  - Laboratory test abnormal [Unknown]
